FAERS Safety Report 7373584-1 (Version None)
Quarter: 2011Q1

REPORT INFORMATION
  Report Type: 
  Country: None (occurrence: None)
  Receive Date: 20110307
  Receipt Date: 20110226
  Transmission Date: 20110831
  Serious: Yes (Other)
  Sender: FDA-Public Use
  Company Number: 2011027728

PATIENT
  Age: 34 Year
  Sex: Female

DRUGS (3)
  1. RHO(D) IMMUNE GLOBULIN NOS [Suspect]
     Indication: PROPHYLAXIS AGAINST RH ISOIMMUNISATION
     Dosage: (300 UG QD) (300 UG, QD)
     Route: 030
     Dates: start: 20101109, end: 20101109
  2. RHO(D) IMMUNE GLOBULIN NOS [Suspect]
     Indication: PROPHYLAXIS AGAINST RH ISOIMMUNISATION
     Dosage: (300 UG QD) (300 UG, QD)
     Route: 030
     Dates: start: 20110216, end: 20110216
  3. BLOOD TRANSFUSION [Concomitant]

REACTIONS (6)
  - PREMATURE LABOUR [None]
  - DRUG EXPOSURE DURING PREGNANCY [None]
  - ASPARTATE AMINOTRANSFERASE INCREASED [None]
  - HEPATITIS C ANTIBODY POSITIVE [None]
  - PLACENTA PRAEVIA [None]
  - ALANINE AMINOTRANSFERASE INCREASED [None]
